FAERS Safety Report 6967409-3 (Version None)
Quarter: 2010Q3

REPORT INFORMATION
  Report Type: 
  Country: None (occurrence: None)
  Receive Date: 20100907
  Receipt Date: 20100902
  Transmission Date: 20110219
  Serious: Yes (Death)
  Sender: FDA-Public Use
  Company Number: JP-SANOFI-AVENTIS-2010SA045739

PATIENT
  Age: 84 Year
  Sex: Female

DRUGS (10)
  1. ELPLAT [Suspect]
     Indication: LARGE INTESTINE CARCINOMA
     Route: 041
     Dates: start: 20100407, end: 20100407
  2. ELPLAT [Suspect]
     Route: 041
     Dates: start: 20100727, end: 20100727
  3. CALCIUM LEVOFOLINATE [Concomitant]
     Indication: LARGE INTESTINE CARCINOMA
     Route: 041
     Dates: start: 20100407, end: 20100407
  4. CALCIUM LEVOFOLINATE [Concomitant]
     Route: 041
     Dates: start: 20100727, end: 20100727
  5. FLUOROURACIL [Concomitant]
     Indication: LARGE INTESTINE CARCINOMA
     Route: 040
     Dates: start: 20100407, end: 20100407
  6. FLUOROURACIL [Concomitant]
     Route: 041
     Dates: start: 20100407, end: 20100408
  7. FLUOROURACIL [Concomitant]
     Route: 040
     Dates: start: 20100727, end: 20100727
  8. FLUOROURACIL [Concomitant]
     Route: 041
     Dates: start: 20100727, end: 20100728
  9. AVASTIN [Concomitant]
     Indication: LARGE INTESTINE CARCINOMA
     Route: 042
     Dates: start: 20100407, end: 20100407
  10. AVASTIN [Concomitant]
     Route: 042
     Dates: start: 20100727, end: 20100727

REACTIONS (2)
  - ANAPHYLACTIC SHOCK [None]
  - DISSEMINATED INTRAVASCULAR COAGULATION [None]
